FAERS Safety Report 5261752-4 (Version None)
Quarter: 2007Q1

REPORT INFORMATION
  Report Type: 
  Country: None (occurrence: None)
  Receive Date: 20061215
  Receipt Date: 20060306
  Transmission Date: 20070707
  Serious: No
  Sender: FDA-Public Use
  Company Number: 06H-163-0306608-00

PATIENT
  Age: 76 Year
  Sex: Male

DRUGS (1)
  1. MORPHINE SULFATE INJ [Suspect]
     Dosage: 2 MG PCA DOSE AND 20MG 4 HR LIMIT, INTRAVENOUS
     Route: 042
     Dates: start: 20050228, end: 20060301

REACTIONS (2)
  - OVERDOSE [None]
  - UNRESPONSIVE TO STIMULI [None]
